FAERS Safety Report 7266912-9 (Version None)
Quarter: 2011Q1

REPORT INFORMATION
  Report Type: 
  Country: None (occurrence: None)
  Receive Date: 20110201
  Receipt Date: 20110125
  Transmission Date: 20110831
  Serious: Yes (Life-Threatening, Hospitalization, Disabling, Other)
  Sender: FDA-Public Use
  Company Number: US-ELI_LILLY_AND_COMPANY-US201101006205

PATIENT
  Age: 59 Year
  Sex: Male

DRUGS (8)
  1. POTASSIUM [Concomitant]
     Dosage: 20 MEQ, DAILY (1/D)
  2. RANITIDINE [Concomitant]
  3. CYMBALTA [Suspect]
     Indication: BACK PAIN
     Dosage: 30 MG, DAILY (1/D)
     Dates: start: 20110101
  4. NADOLOL [Concomitant]
     Dosage: 20 MG, DAILY (1/D)
  5. METHADONE HCL [Concomitant]
     Dosage: 5 MG, 2/D
  6. HYDROXYZINE HCL [Concomitant]
     Dosage: 10 MG, DAILY (1/D)
  7. LASIX [Concomitant]
     Dosage: 80 MG, 2/D
  8. CALCIUM 600 + D [Concomitant]
     Dosage: UNK, 3/D

REACTIONS (5)
  - SEDATION [None]
  - OFF LABEL USE [None]
  - MECHANICAL VENTILATION [None]
  - BRAIN INJURY [None]
  - CEREBROVASCULAR ACCIDENT [None]
